FAERS Safety Report 4475990-1 (Version None)
Quarter: 2004Q4

REPORT INFORMATION
  Report Type: 
  Country: None (occurrence: None)
  Receive Date: 20041012
  Receipt Date: 20041001
  Transmission Date: 20050328
  Serious: Yes (Death)
  Sender: FDA-Public Use
  Company Number: US013941

PATIENT

DRUGS (1)
  1. PROVIGIL [Suspect]

REACTIONS (1)
  - COMPLETED SUICIDE [None]
